FAERS Safety Report 16343744 (Version 1)
Quarter: 2019Q2

REPORT INFORMATION
  Report Type: Spontaneous
  Country: US (occurrence: US)
  Receive Date: 20190522
  Receipt Date: 20190522
  Transmission Date: 20190711
  Serious: No
  Sender: FDA-Public Use
  Company Number: US-PFIZER INC-2019215084

PATIENT
  Age: 72 Year
  Sex: Female
  Weight: 81.63 kg

DRUGS (3)
  1. ADVIL PM [Suspect]
     Active Substance: DIPHENHYDRAMINE CITRATE\IBUPROFEN
     Indication: SLEEP DISORDER
  2. ADVIL PM [Suspect]
     Active Substance: DIPHENHYDRAMINE CITRATE\IBUPROFEN
     Indication: PAIN
     Dosage: 200 MG, 1X/DAY, [ONCE A NIGHT BY MOUTH DAILY ]
     Route: 048
     Dates: start: 2019
  3. ADVIL LIQUI GELS [Concomitant]
     Dosage: 2 DF, DAILY

REACTIONS (1)
  - Middle insomnia [Unknown]
